FAERS Safety Report 4699767-7 (Version None)
Quarter: 2005Q2

REPORT INFORMATION
  Report Type: 
  Country: None (occurrence: None)
  Receive Date: 20050623
  Receipt Date: 20050607
  Transmission Date: 20051028
  Serious: Yes (Hospitalization)
  Sender: FDA-Public Use
  Company Number: DSA_81348_2005

PATIENT
  Age: 72 Year
  Sex: Female
  Weight: 90.7194 kg

DRUGS (17)
  1. XYREM [Suspect]
     Indication: CATAPLEXY
     Dosage: 4.5 G TWICE NIGHTY PO
     Route: 048
     Dates: start: 20040701, end: 20050101
  2. XYREM [Suspect]
     Indication: NARCOLEPSY
     Dosage: 4.5 G TWICE NIGHTY PO
     Route: 048
     Dates: start: 20040701, end: 20050101
  3. XYREM [Suspect]
     Indication: CATAPLEXY
     Dosage: 3 G TWICE NIGHTLY PO
     Route: 048
     Dates: start: 20030601, end: 20040701
  4. XYREM [Suspect]
     Indication: NARCOLEPSY
     Dosage: 3 G TWICE NIGHTLY PO
     Route: 048
     Dates: start: 20030601, end: 20040701
  5. XYREM [Suspect]
     Indication: CATAPLEXY
     Dosage: 2.25 G TWICE NIGHTLY PO
     Route: 048
     Dates: start: 20030101, end: 20030601
  6. XYREM [Suspect]
     Indication: NARCOLEPSY
     Dosage: 2.25 G TWICE NIGHTLY PO
     Route: 048
     Dates: start: 20030101, end: 20030601
  7. PROVIGIL [Concomitant]
  8. GLUCOPHAGE [Concomitant]
  9. INSULIN [Concomitant]
  10. EFFEXOR [Concomitant]
  11. LANOXIN [Concomitant]
  12. LEVOTHYROXINE [Concomitant]
  13. ALTACE [Concomitant]
  14. COUMADIN [Concomitant]
  15. TOPROL-XL [Concomitant]
  16. LASIX [Concomitant]
  17. LIPITOR [Concomitant]

REACTIONS (2)
  - ABNORMAL BEHAVIOUR [None]
  - AGGRESSION [None]
